FAERS Safety Report 5088357-2 (Version None)
Quarter: 2006Q3

REPORT INFORMATION
  Report Type: 
  Country: None (occurrence: None)
  Receive Date: 20060821
  Receipt Date: 20060802
  Transmission Date: 20061208
  Serious: Yes (Hospitalization)
  Sender: FDA-Public Use
  Company Number: 228619

PATIENT
  Age: 62 Year
  Sex: 0

DRUGS (2)
  1. AVASTIN [Suspect]
     Indication: BREAST CANCER
     Dosage: 10 MG/KG, Q2W, INTRAVENOUS
     Route: 042
     Dates: start: 20060630
  2. DOXORUBICIN (DOXORUBICN/DOXORUBICIN HYDROCHLORIDE) [Suspect]
     Indication: BREAST CANCER
     Dosage: 60 MG/M2, Q2W, INTRAVENOUS
     Route: 042
     Dates: start: 20060630

REACTIONS (2)
  - FEBRILE NEUTROPENIA [None]
  - NASOPHARYNGITIS [None]
